FAERS Safety Report 5151095-1 (Version None)
Quarter: 2006Q4

REPORT INFORMATION
  Report Type: 
  Country: None (occurrence: None)
  Receive Date: 20061114
  Receipt Date: 20061114
  Transmission Date: 20070319
  Serious: Yes (Disabling, Other)
  Sender: FDA-Public Use
  Company Number: None

PATIENT
  Age: 54 Year
  Sex: Female
  Weight: 45.3597 kg

DRUGS (1)
  1. ACTONEL [Suspect]
     Indication: OSTEOPOROSIS
     Dosage: 35 MG   OCE A WEEK   PO
     Route: 048
     Dates: start: 20030707, end: 20050604

REACTIONS (7)
  - ANGER [None]
  - DEVICE BREAKAGE [None]
  - FEELING ABNORMAL [None]
  - JAW DISORDER [None]
  - ORAL INTAKE REDUCED [None]
  - OSTEONECROSIS [None]
  - WEIGHT DECREASED [None]
